FAERS Safety Report 19321794 (Version 1)
Quarter: 2021Q2

REPORT INFORMATION
  Report Type: Spontaneous
  Country: FI (occurrence: FI)
  Receive Date: 20210527
  Receipt Date: 20210527
  Transmission Date: 20210717
  Serious: Yes (Death, Other)
  Sender: FDA-Public Use
  Company Number: FI-009507513-2105FIN006024

PATIENT
  Age: 15 Year
  Sex: Male

DRUGS (2)
  1. CARBOPLATIN. [Suspect]
     Active Substance: CARBOPLATIN
     Dosage: UNK
     Dates: start: 2012
  2. TEMOZOLOMIDE. [Suspect]
     Active Substance: TEMOZOLOMIDE
     Indication: MALIGNANT MELANOMA
     Dosage: UNK
     Dates: start: 2012

REACTIONS (8)
  - Metastases to bone [Unknown]
  - Product use issue [Unknown]
  - Death [Fatal]
  - General physical health deterioration [Unknown]
  - Metastases to the mediastinum [Unknown]
  - Metastases to liver [Unknown]
  - Metastases to lung [Unknown]
  - Product use in unapproved indication [Unknown]

NARRATIVE: CASE EVENT DATE: 2012
